FAERS Safety Report 25767264 (Version 1)
Quarter: 2025Q3

REPORT INFORMATION
  Report Type: Spontaneous
  Country: US (occurrence: US)
  Receive Date: 20250905
  Receipt Date: 20250905
  Transmission Date: 20251020
  Serious: No
  Sender: SANOFI AVENTIS
  Company Number: US-SA-2025SA265583

PATIENT
  Age: 74 Year
  Sex: Male

DRUGS (3)
  1. DUPIXENT [Suspect]
     Active Substance: DUPILUMAB
     Indication: Dermatitis atopic
     Dosage: 300 MG, QOW
     Route: 058
     Dates: start: 202402
  2. DUPIXENT [Suspect]
     Active Substance: DUPILUMAB
     Indication: Asthma
  3. TREMFYA [Suspect]
     Active Substance: GUSELKUMAB
     Dates: end: 20250810

REACTIONS (6)
  - Joint swelling [Unknown]
  - Condition aggravated [Unknown]
  - Abdominal pain [Recovering/Resolving]
  - Arthralgia [Unknown]
  - Dermatitis atopic [Unknown]
  - Asthma [Unknown]

NARRATIVE: CASE EVENT DATE: 20250101
